FAERS Safety Report 8175029-0 (Version None)
Quarter: 2012Q1

REPORT INFORMATION
  Report Type: 
  Country: None (occurrence: None)
  Receive Date: 20120229
  Receipt Date: 20120221
  Transmission Date: 20120608
  Serious: Yes (Hospitalization, Other)
  Sender: FDA-Public Use
  Company Number: PHHY2010JP35795

PATIENT
  Age: 58 Year
  Sex: Male

DRUGS (5)
  1. HANP [Concomitant]
  2. RASILEZ [Suspect]
     Indication: HYPERTENSION
     Dosage: 150 MG
     Route: 048
     Dates: start: 20100426, end: 20100526
  3. MIZORIBINE [Concomitant]
     Dosage: 100 MG
     Route: 048
     Dates: end: 20100528
  4. LASIX [Concomitant]
     Indication: HYPERTENSION
     Route: 048
  5. BREDININ [Concomitant]
     Dosage: 5 MG, UNK
     Route: 048

REACTIONS (7)
  - OEDEMA [None]
  - BLOOD CREATININE INCREASED [None]
  - CELLULITIS [None]
  - PROTEIN URINE PRESENT [None]
  - HYPERTENSION [None]
  - C-REACTIVE PROTEIN INCREASED [None]
  - WHITE BLOOD CELL COUNT INCREASED [None]
